FAERS Safety Report 4456443-3 (Version None)
Quarter: 2004Q3

REPORT INFORMATION
  Report Type: 
  Country: None (occurrence: None)
  Receive Date: 20040830
  Receipt Date: 20040514
  Transmission Date: 20050211
  Serious: No
  Sender: FDA-Public Use
  Company Number: 206519

PATIENT
  Age: 62 Year
  Sex: Female
  Weight: 170 kg

DRUGS (14)
  1. XOLAIR [Suspect]
     Indication: ASTHMA
     Dosage: 225 MG, Q2W, SUBCUTANEOUS
     Route: 058
     Dates: start: 20040429, end: 20040513
  2. ZYRTEC [Concomitant]
  3. SINGULAIR [Concomitant]
  4. LASIX [Concomitant]
  5. PREVACID [Concomitant]
  6. LORAZEPAM [Concomitant]
  7. VICODIN [Concomitant]
  8. VITAMIN (VITAMINS NOS) [Concomitant]
  9. OXYGEN (OXYGEN) [Concomitant]
  10. COMBIVENT (ALBUTEROL SULFATE, ALBUTEROL, IPRATROPIUM BROMIDE) [Concomitant]
  11. SEREVENT [Concomitant]
  12. PULMICORT [Concomitant]
  13. RHINOCORT [Concomitant]
  14. CELEBREX [Concomitant]

REACTIONS (1)
  - OEDEMA PERIPHERAL [None]
